FAERS Safety Report 8143990-6 (Version None)
Quarter: 2012Q1

REPORT INFORMATION
  Report Type: 
  Country: None (occurrence: None)
  Receive Date: 20120217
  Receipt Date: 20120217
  Transmission Date: 20120608
  Serious: Yes (Hospitalization, Other)
  Sender: FDA-Public Use
  Company Number: None

PATIENT
  Age: 57 Year
  Sex: Female
  Weight: 61.234 kg

DRUGS (1)
  1. AVELOX [Suspect]
     Indication: BRONCHITIS VIRAL
     Dosage: 400.0 MG
     Route: 048
     Dates: start: 20120210, end: 20120211

REACTIONS (19)
  - DIARRHOEA [None]
  - ABASIA [None]
  - NAUSEA [None]
  - SPEECH DISORDER [None]
  - GASTROINTESTINAL PAIN [None]
  - MALAISE [None]
  - DIZZINESS [None]
  - NERVOUS SYSTEM DISORDER [None]
  - BLOOD PRESSURE INCREASED [None]
  - GASTROINTESTINAL DISORDER [None]
  - PSYCHOTIC DISORDER [None]
  - INCOHERENT [None]
  - AMNESIA [None]
  - IMPAIRED DRIVING ABILITY [None]
  - ABDOMINAL PAIN [None]
  - DISORIENTATION [None]
  - HEART RATE INCREASED [None]
  - VISUAL IMPAIRMENT [None]
  - VENTRICULAR ARRHYTHMIA [None]
